FAERS Safety Report 7025116-5 (Version None)
Quarter: 2010Q4

REPORT INFORMATION
  Report Type: 
  Country: None (occurrence: None)
  Receive Date: 20101001
  Receipt Date: 20100923
  Transmission Date: 20110411
  Serious: No
  Sender: FDA-Public Use
  Company Number: MX-PFIZER INC-2010116890

PATIENT
  Age: 59 Year
  Sex: Male
  Weight: 90.5 kg

DRUGS (6)
  1. LIPITOR [Suspect]
     Indication: HYPERCHOLESTEROLAEMIA
     Dosage: 20 MG, 2X/DAY
     Route: 048
     Dates: start: 20100701, end: 20100825
  2. BI-EUGLUCON M [Concomitant]
     Indication: HYPOGLYCAEMIA
     Dosage: 500 MG, 3X/DAY
     Route: 048
     Dates: start: 19870901
  3. NORVASC [Concomitant]
     Indication: HYPERTENSION
     Dosage: 5 MG, 1X/DAY
     Route: 048
     Dates: start: 19870901
  4. TENORMIN [Concomitant]
     Indication: HYPERTENSION
     Dosage: 50 MG, 3X/DAY
     Route: 048
     Dates: start: 19870901
  5. INSULIN [Concomitant]
     Indication: DIABETES MELLITUS
     Dosage: UNK
     Route: 058
  6. NEURONTIN [Concomitant]
     Indication: PAIN IN EXTREMITY
     Dosage: UNK

REACTIONS (7)
  - HEADACHE [None]
  - INFLAMMATION [None]
  - MALAISE [None]
  - OEDEMA PERIPHERAL [None]
  - PAIN IN EXTREMITY [None]
  - PYREXIA [None]
  - SKIN WARM [None]
